FAERS Safety Report 7012114-0 (Version None)
Quarter: 2010Q3

REPORT INFORMATION
  Report Type: 
  Country: None (occurrence: None)
  Receive Date: 20100924
  Receipt Date: 20100915
  Transmission Date: 20110219
  Serious: Yes (Hospitalization)
  Sender: FDA-Public Use
  Company Number: KR-ASTRAZENECA-2010SE43307

PATIENT
  Age: 36 Year
  Sex: Male

DRUGS (2)
  1. LIDOCAINE [Suspect]
     Indication: NERVE BLOCK
     Route: 053
  2. LIDOCAINE [Suspect]
     Dosage: 2 ML
     Route: 058

REACTIONS (1)
  - ISCHAEMIA [None]
